FAERS Safety Report 8277056-1 (Version None)
Quarter: 2012Q2

REPORT INFORMATION
  Report Type: 
  Country: None (occurrence: None)
  Receive Date: 20120412
  Receipt Date: 20120409
  Transmission Date: 20120825
  Serious: No
  Sender: FDA-Public Use
  Company Number: US-BAYER-2012-035391

PATIENT
  Age: 53 Year
  Sex: Male
  Weight: 54 kg

DRUGS (6)
  1. ALEVE (CAPLET) [Suspect]
     Indication: PAIN
     Dosage: 1, THREE TIMES DAILY
  2. FOLIC ACID [Concomitant]
  3. CITALOPRAM HYDROBROMIDE [Concomitant]
  4. SIMVASTATIN [Concomitant]
  5. VITAMIN B COMPLEX CAP [Concomitant]
  6. LEVOTHYROXINE SODIUM [Concomitant]

REACTIONS (1)
  - HEADACHE [None]
